FAERS Safety Report 23948468 (Version 3)
Quarter: 2025Q2

REPORT INFORMATION
  Report Type: Report from Study
  Country: US (occurrence: US)
  Receive Date: 20240607
  Receipt Date: 20250507
  Transmission Date: 20250717
  Serious: No
  Sender: AMGEN
  Company Number: US-AMGEN-USASP2024111263

PATIENT
  Age: 71 Year
  Sex: Female

DRUGS (1)
  1. TEPEZZA [Suspect]
     Active Substance: TEPROTUMUMAB-TRBW
     Indication: Endocrine ophthalmopathy
     Dosage: UNK, 1X Q3WK
     Route: 040
     Dates: start: 20240322

REACTIONS (2)
  - Vertigo [Unknown]
  - Blood glucose increased [Unknown]
